FAERS Safety Report 6010127-9 (Version None)
Quarter: 2008Q4

REPORT INFORMATION
  Report Type: 
  Country: None (occurrence: None)
  Receive Date: 20081217
  Receipt Date: 20081217
  Transmission Date: 20090506
  Serious: Yes (Other)
  Sender: FDA-Public Use
  Company Number: None

PATIENT
  Age: 69 Year
  Sex: Female

DRUGS (6)
  1. LEVAQUIN [Suspect]
     Indication: DIVERTICULITIS
     Dates: start: 20081118
  2. LEVAQUIN [Suspect]
     Indication: DIVERTICULITIS
     Dates: start: 20081119
  3. NORVASC [Concomitant]
  4. ASPIRIN [Concomitant]
  5. ATACAND [Concomitant]
  6. PRAVACHOL [Concomitant]

REACTIONS (3)
  - BLISTER [None]
  - ERYTHEMA [None]
  - PAIN [None]
